FAERS Safety Report 6016737-7 (Version None)
Quarter: 2008Q4

REPORT INFORMATION
  Report Type: 
  Country: None (occurrence: None)
  Receive Date: 20081222
  Receipt Date: 20081209
  Transmission Date: 20090506
  Serious: No
  Sender: FDA-Public Use
  Company Number: US-B.I. PHARMACEUTICALS,INC./RIDGEFIELD-2008-BP-15797BP

PATIENT
  Sex: Female

DRUGS (1)
  1. COMBIVENT [Suspect]
     Dosage: 8PUF
     Route: 055
     Dates: start: 20040101

REACTIONS (1)
  - DRUG INEFFECTIVE [None]
